FAERS Safety Report 12823765 (Version 1)
Quarter: 2016Q4

REPORT INFORMATION
  Report Type: Spontaneous
  Country: US (occurrence: US)
  Receive Date: 20161007
  Receipt Date: 20161007
  Transmission Date: 20170207
  Serious: No
  Sender: FDA-Public Use
  Company Number: US-GLAXOSMITHKLINE-US2016GSK146771

PATIENT
  Age: 63 Year
  Sex: Female

DRUGS (6)
  1. FLOLAN DILUENT SOLUTION FOR INJECTION [Suspect]
     Active Substance: GLYCINE\MANNITOL\SODIUM CHLORIDE
  2. REVATIO [Concomitant]
     Active Substance: SILDENAFIL CITRATE
  3. LETAIRIS [Concomitant]
     Active Substance: AMBRISENTAN
  4. FLOLAN [Suspect]
     Active Substance: EPOPROSTENOL SODIUM
     Indication: PULMONARY ARTERIAL HYPERTENSION
     Dosage: 24 NG/KG/MIN CO (CONCENTRATION: 30,000 NG/ML; PUMP RATE: 68 ML/DAY; VIAL STRENGTH: 1.5MG)
     Dates: start: 20120911
  5. COUMADIN [Suspect]
     Active Substance: WARFARIN SODIUM
  6. ASPIRIN. [Suspect]
     Active Substance: ASPIRIN

REACTIONS (3)
  - Emergency care [Unknown]
  - Epistaxis [Unknown]
  - Vascular cauterisation [Unknown]

NARRATIVE: CASE EVENT DATE: 20160924
